FAERS Safety Report 9654397 (Version 3)
Quarter: 2013Q4

REPORT INFORMATION
  Report Type: Report from Study
  Country: DE (occurrence: DE)
  Receive Date: 20131029
  Receipt Date: 20131113
  Transmission Date: 20140711
  Serious: Yes (Hospitalization)
  Sender: FDA-Public Use
  Company Number: DE-EXELIXIS-XL18413003443

PATIENT
  Age: 72 Year
  Sex: Male
  Weight: 86 kg

DRUGS (7)
  1. XL184 [Suspect]
     Indication: PROSTATE CANCER
     Dosage: 60 MG, QD
     Route: 048
     Dates: start: 20130930, end: 20131007
  2. XL184 [Suspect]
     Dosage: 60 MG, QD
     Route: 048
     Dates: start: 20131030
  3. XL184 [Suspect]
     Indication: PROSTATE CANCER
     Dosage: 5 MG, BID
     Route: 048
     Dates: start: 20130930, end: 20131007
  4. XL184 [Suspect]
     Dosage: 5 MG, QD
     Route: 048
     Dates: start: 20131022
  5. VALORON N [Concomitant]
  6. LACTULOSE [Concomitant]
  7. CARVE-Q [Concomitant]

REACTIONS (2)
  - Syncope [Recovered/Resolved]
  - Sepsis [Recovered/Resolved]
